FAERS Safety Report 7249363-2 (Version None)
Quarter: 2011Q1

REPORT INFORMATION
  Report Type: 
  Country: None (occurrence: None)
  Receive Date: 20110128
  Receipt Date: 20101210
  Transmission Date: 20110831
  Serious: Yes (Other)
  Sender: FDA-Public Use
  Company Number: US-BAYER-2010-004115

PATIENT
  Age: 15 Year
  Sex: Male

DRUGS (1)
  1. ASPIRIN [Suspect]

REACTIONS (1)
  - TOXICITY TO VARIOUS AGENTS [None]
